FAERS Safety Report 5870794-7 (Version None)
Quarter: 2008Q3

REPORT INFORMATION
  Report Type: 
  Country: None (occurrence: None)
  Receive Date: 20080904
  Receipt Date: 20080826
  Transmission Date: 20090109
  Serious: Yes (Hospitalization, Other)
  Sender: FDA-Public Use
  Company Number: GB-ABBOTT-08P-167-0461956-00

PATIENT
  Sex: Male

DRUGS (4)
  1. HUMIRA [Suspect]
     Indication: CROHN'S DISEASE
     Route: 058
     Dates: start: 20080424, end: 20080424
  2. HUMIRA [Suspect]
     Dates: end: 20080424
  3. MESALAMINE [Concomitant]
     Indication: CROHN'S DISEASE
     Dates: start: 20051001
  4. AZATHIOPRINE [Concomitant]
     Indication: CROHN'S DISEASE
     Route: 048
     Dates: start: 20061101

REACTIONS (4)
  - MUSCULOSKELETAL STIFFNESS [None]
  - NECK DEFORMITY [None]
  - NECK PAIN [None]
  - SINUS HEADACHE [None]
